FAERS Safety Report 4401678-9 (Version None)
Quarter: 2004Q3

REPORT INFORMATION
  Report Type: 
  Country: None (occurrence: None)
  Receive Date: 20040719
  Receipt Date: 20040324
  Transmission Date: 20050211
  Serious: Yes (Hospitalization)
  Sender: FDA-Public Use
  Company Number: FR-GLAXOSMITHKLINE-B0327796A

PATIENT
  Age: 38 Year
  Sex: Female

DRUGS (1)
  1. AUGMENTIN '125' [Suspect]
     Dosage: 1G SINGLE DOSE
     Route: 048
     Dates: start: 20040311, end: 20040311

REACTIONS (13)
  - BLOOD LACTATE DEHYDROGENASE INCREASED [None]
  - C-REACTIVE PROTEIN INCREASED [None]
  - HYPOALBUMINAEMIA [None]
  - HYPOCALCAEMIA [None]
  - HYPOKALAEMIA [None]
  - LEUKOCYTOSIS [None]
  - LYMPHOPENIA [None]
  - MEDICATION ERROR [None]
  - PRURITUS [None]
  - PYREXIA [None]
  - RASH SCARLATINIFORM [None]
  - TOXIC SKIN ERUPTION [None]
  - VOMITING [None]
